FAERS Safety Report 7387058-5 (Version None)
Quarter: 2011Q1

REPORT INFORMATION
  Report Type: 
  Country: None (occurrence: None)
  Receive Date: 20110331
  Receipt Date: 20110322
  Transmission Date: 20110831
  Serious: Yes (Hospitalization, Disabling, Other)
  Sender: FDA-Public Use
  Company Number: US-MERCK-0902USA04515

PATIENT
  Age: 54 Year
  Sex: Female

DRUGS (2)
  1. FOSAMAX [Suspect]
     Indication: RHEUMATOID ARTHRITIS
     Route: 048
     Dates: start: 19960101, end: 20011001
  2. FOSAMAX [Suspect]
     Route: 048
     Dates: start: 20010101, end: 20060418

REACTIONS (50)
  - STAPHYLOCOCCAL INFECTION [None]
  - TRISMUS [None]
  - DENTAL CARIES [None]
  - ADVERSE DRUG REACTION [None]
  - JAW FRACTURE [None]
  - URINARY INCONTINENCE [None]
  - RASH PRURITIC [None]
  - RASH [None]
  - PARANASAL SINUS HYPERSECRETION [None]
  - ATLANTOAXIAL INSTABILITY [None]
  - STRESS FRACTURE [None]
  - ARTHROPATHY [None]
  - IMPAIRED HEALING [None]
  - ACTINOMYCOSIS [None]
  - ANAEMIA [None]
  - BEDRIDDEN [None]
  - OSTEOPOROSIS [None]
  - POLLAKIURIA [None]
  - DEVICE FAILURE [None]
  - HYPOAESTHESIA [None]
  - RHEUMATOID ARTHRITIS [None]
  - MIXED INCONTINENCE [None]
  - CYSTOCELE [None]
  - HYPERTONIC BLADDER [None]
  - NEUROGENIC BLADDER [None]
  - LOWER LIMB FRACTURE [None]
  - ANXIETY [None]
  - CEREBROVASCULAR ACCIDENT [None]
  - FEMUR FRACTURE [None]
  - DEPRESSION [None]
  - FISTULA DISCHARGE [None]
  - CHEILITIS [None]
  - CANDIDIASIS [None]
  - OSTEONECROSIS OF JAW [None]
  - PATHOLOGICAL FRACTURE [None]
  - BONE DENSITY DECREASED [None]
  - DRUG HYPERSENSITIVITY [None]
  - STOMATITIS [None]
  - FUNGAL INFECTION [None]
  - CYSTITIS [None]
  - URETHRAL INTRINSIC SPHINCTER DEFICIENCY [None]
  - LOW TURNOVER OSTEOPATHY [None]
  - WOUND DEHISCENCE [None]
  - ABSCESS [None]
  - POST PROCEDURAL INFECTION [None]
  - OSTEOMYELITIS [None]
  - PROCEDURAL COMPLICATION [None]
  - FRACTURE NONUNION [None]
  - SEASONAL ALLERGY [None]
  - MOUTH ULCERATION [None]
